FAERS Safety Report 21003127 (Version 1)
Quarter: 2022Q2

REPORT INFORMATION
  Report Type: Spontaneous
  Country: FR (occurrence: FR)
  Receive Date: 20220624
  Receipt Date: 20220624
  Transmission Date: 20220720
  Serious: Yes (Other)
  Sender: FDA-Public Use
  Company Number: FR-AFSSAPS-AM20221487

PATIENT
  Age: 55 Year
  Sex: Male

DRUGS (2)
  1. GABAPENTIN [Suspect]
     Active Substance: GABAPENTIN
     Indication: Neuralgia
     Dosage: 2400 MILLIGRAM, DAILY
     Route: 065
     Dates: start: 2015
  2. .DELTA.9-TETRAHYDROCANNABINOL\CANNABIDIOL\HERBALS [Suspect]
     Active Substance: .DELTA.9-TETRAHYDROCANNABINOL\CANNABIDIOL\HERBALS
     Indication: Neuralgia
     Dosage: 40 MILLIGRAM, DAILY
     Route: 048
     Dates: start: 20211005

REACTIONS (3)
  - Somnolence [Recovered/Resolved]
  - Fatigue [Not Recovered/Not Resolved]
  - Abdominal pain [Recovered/Resolved]

NARRATIVE: CASE EVENT DATE: 20211221
